FAERS Safety Report 15488678 (Version 1)
Quarter: 2018Q4

REPORT INFORMATION
  Report Type: Spontaneous
  Country: US (occurrence: US)
  Receive Date: 20181011
  Receipt Date: 20181011
  Transmission Date: 20190205
  Serious: No
  Sender: FDA-Public Use
  Company Number: US-PFIZER INC-2018405839

PATIENT
  Age: 55 Year
  Sex: Male

DRUGS (1)
  1. CHANTIX [Suspect]
     Active Substance: VARENICLINE TARTRATE
     Dosage: UNK, ALTERNATE DAY,(TAKING THE CHANTIX EVERY OTHER DAY)

REACTIONS (2)
  - Off label use [Unknown]
  - Drug ineffective [Unknown]
